FAERS Safety Report 5817015-9 (Version None)
Quarter: 2008Q3

REPORT INFORMATION
  Report Type: 
  Country: None (occurrence: None)
  Receive Date: 20080722
  Receipt Date: 20080715
  Transmission Date: 20090109
  Serious: Yes (Hospitalization)
  Sender: FDA-Public Use
  Company Number: IT-BAYER-IT-2007-025584

PATIENT
  Age: 81 Year
  Sex: Male

DRUGS (1)
  1. ULTRAVIST 370 [Suspect]
     Indication: COMPUTERISED TOMOGRAM
     Dosage: UNIT DOSE: 130 ML
     Route: 040
     Dates: start: 20070706, end: 20070706

REACTIONS (2)
  - INCONTINENCE [None]
  - LOSS OF CONSCIOUSNESS [None]
